FAERS Safety Report 23882277 (Version 1)
Quarter: 2024Q2

REPORT INFORMATION
  Report Type: Report from Study
  Country: US (occurrence: US)
  Receive Date: 20240522
  Receipt Date: 20240522
  Transmission Date: 20240716
  Serious: Yes (Other)
  Sender: FDA-Public Use
  Company Number: US-ABBVIE-5767858

PATIENT
  Age: 78 Year
  Sex: Female
  Weight: 50 kg

DRUGS (2)
  1. CREON [Suspect]
     Active Substance: PANCRELIPASE AMYLASE\PANCRELIPASE LIPASE\PANCRELIPASE PROTEASE
     Indication: Gastrointestinal disorder
     Dosage: FREQUENCY TEXT: TWO PILLS THREE TIMES A DAY?STRENGTH: 24000 UNIT
     Route: 048
     Dates: start: 20240511
  2. CREON [Suspect]
     Active Substance: PANCRELIPASE AMYLASE\PANCRELIPASE LIPASE\PANCRELIPASE PROTEASE
     Indication: Gastrointestinal disorder
     Dosage: FREQUENCY TEXT: TWO PILLS THREE TIMES A DAY?STRENGTH: 24000 UNIT
     Route: 048
     Dates: start: 202309, end: 20240509

REACTIONS (1)
  - Bladder wall calcification [Recovered/Resolved]

NARRATIVE: CASE EVENT DATE: 20240510
